FAERS Safety Report 10068119 (Version 1)
Quarter: 2014Q2

REPORT INFORMATION
  Report Type: Spontaneous
  Country: US (occurrence: US)
  Receive Date: 20140409
  Receipt Date: 20140409
  Transmission Date: 20141212
  Serious: No
  Sender: FDA-Public Use
  Company Number: US-PFIZER INC-2014096153

PATIENT
  Age: 36 Year
  Sex: Female

DRUGS (2)
  1. SUTENT [Suspect]
     Dosage: 37.5 MG, DAILY
     Dates: start: 20140314
  2. SUTENT [Suspect]
     Dosage: 25 MG, DAILY
     Route: 048

REACTIONS (2)
  - Arthralgia [Unknown]
  - Muscle spasms [Unknown]
